FAERS Safety Report 25141004 (Version 1)
Quarter: 2025Q1

REPORT INFORMATION
  Report Type: Spontaneous
  Country: US (occurrence: US)
  Receive Date: 20250331
  Receipt Date: 20250331
  Transmission Date: 20250408
  Serious: No
  Sender: ABBVIE
  Company Number: US-ABBVIE-6202462

PATIENT
  Age: 79 Year
  Sex: Female
  Weight: 63 kg

DRUGS (5)
  1. LUMIGAN [Suspect]
     Active Substance: BIMATOPROST
     Indication: Glaucoma
     Route: 047
     Dates: start: 20250310, end: 20250318
  2. LUMIGAN [Suspect]
     Active Substance: BIMATOPROST
     Indication: Glaucoma
     Route: 047
     Dates: start: 20250319, end: 20250325
  3. ASPIRIN [Concomitant]
     Active Substance: ASPIRIN
     Indication: Chondropathy
     Dosage: 325 MILLIGRAM
  4. KEFLEX [Concomitant]
     Active Substance: CEPHALEXIN
     Indication: Inflammation
  5. TRAMADOL [Concomitant]
     Active Substance: TRAMADOL
     Indication: Pain
     Route: 065

REACTIONS (5)
  - Retching [Recovered/Resolved]
  - Vertigo [Not Recovered/Not Resolved]
  - Dizziness [Not Recovered/Not Resolved]
  - Nausea [Recovering/Resolving]
  - Retching [Recovered/Resolved]

NARRATIVE: CASE EVENT DATE: 20250313
